FAERS Safety Report 4513259-7 (Version None)
Quarter: 2004Q4

REPORT INFORMATION
  Report Type: 
  Country: None (occurrence: None)
  Receive Date: 20041124
  Receipt Date: 20041117
  Transmission Date: 20050328
  Serious: Yes (Hospitalization)
  Sender: FDA-Public Use
  Company Number: FRWYE161629OCT04

PATIENT
  Age: 52 Year
  Sex: Female

DRUGS (3)
  1. EFFEXOR [Suspect]
     Indication: DEPRESSION
     Dosage: 1 DOSE 1X PER 1 DAY, ORAL
     Route: 048
     Dates: start: 20010701, end: 20040906
  2. LEVOTHYROXINE SODIUM [Concomitant]
  3. XANAX [Suspect]
     Dosage: 0.25 MG ON DEMAND
     Dates: start: 20010701

REACTIONS (4)
  - ANTINUCLEAR ANTIBODY POSITIVE [None]
  - LEUKOCYTOCLASTIC VASCULITIS [None]
  - PRURIGO [None]
  - SKIN TOXICITY [None]
